FAERS Safety Report 11055739 (Version 1)
Quarter: 2015Q2

REPORT INFORMATION
  Report Type: Spontaneous
  Country: US (occurrence: None)
  Receive Date: 20150421
  Receipt Date: 20150421
  Transmission Date: 20150821
  Serious: No
  Sender: FDA-Public Use
  Company Number: None

PATIENT
  Age: 18 Year
  Sex: Female

DRUGS (1)
  1. ENBREL [Suspect]
     Active Substance: ETANERCEPT
     Indication: JUVENILE IDIOPATHIC ARTHRITIS
     Dosage: 50 MG, QW, SQ
     Route: 058
     Dates: start: 20140828

REACTIONS (3)
  - Bone disorder [None]
  - Injection site bruising [None]
  - Injection site pain [None]

NARRATIVE: CASE EVENT DATE: 20150401
